FAERS Safety Report 4999004-X (Version None)
Quarter: 2006Q2

REPORT INFORMATION
  Report Type: 
  Country: None (occurrence: None)
  Receive Date: 20060509
  Receipt Date: 20060420
  Transmission Date: 20061013
  Serious: Yes (Other)
  Sender: FDA-Public Use
  Company Number: US200604003434

PATIENT
  Age: 69 Year
  Sex: Female

DRUGS (6)
  1. CYMBALTA [Suspect]
     Indication: PAIN
     Dosage: 30 MG; SEE IMAGE
     Dates: start: 20060415, end: 20060417
  2. LISINOPRIL [Concomitant]
  3. ACEBUTOLOL [Concomitant]
  4. XALATAN /SWE/ (LATANOPROST) [Concomitant]
  5. NITROGLYCERIN ^PHARMACIA + UPJOHN^ (GLYCERYL TRINITRATE) [Concomitant]
  6. CLONAZEPAM [Concomitant]

REACTIONS (3)
  - BLOOD PRESSURE INCREASED [None]
  - INSOMNIA [None]
  - NAUSEA [None]
